FAERS Safety Report 11833646 (Version 1)
Quarter: 2015Q4

REPORT INFORMATION
  Report Type: Spontaneous
  Country: FR (occurrence: FR)
  Receive Date: 20151214
  Receipt Date: 20151214
  Transmission Date: 20160305
  Serious: Yes (Hospitalization)
  Sender: FDA-Public Use
  Company Number: FR-SA-2015SA206698

PATIENT
  Age: 75 Year
  Sex: Female

DRUGS (12)
  1. DUROGESIC [Suspect]
     Active Substance: FENTANYL
     Route: 062
     Dates: start: 20151017
  2. ZYRTEC [Concomitant]
     Active Substance: CETIRIZINE HYDROCHLORIDE
     Dosage: START DATE: LONG TIME
     Route: 048
     Dates: end: 20151021
  3. STILNOX [Suspect]
     Active Substance: ZOLPIDEM TARTRATE
     Dosage: START DATE: LONG TIME
     Route: 048
     Dates: end: 20151021
  4. ANAFRANIL [Concomitant]
     Active Substance: CLOMIPRAMINE HYDROCHLORIDE
     Dosage: START DATE: LONG TIME
     Route: 048
  5. TRIMEBUTINE [Concomitant]
     Active Substance: TRIMEBUTINE
     Dosage: START DATE: LONG TIME
     Route: 048
     Dates: start: 20151021
  6. DUROGESIC [Suspect]
     Active Substance: FENTANYL
     Route: 062
     Dates: end: 20151021
  7. DAFALGAN [Concomitant]
     Active Substance: ACETAMINOPHEN
     Dosage: START DATE: LONG TIME
     Route: 048
  8. LYSANXIA [Suspect]
     Active Substance: PRAZEPAM
     Route: 048
     Dates: start: 201511
  9. PHLOROGLUCINOL [Concomitant]
     Active Substance: PHLOROGLUCINOL
     Dosage: START DATE: LONG TIME
     Route: 048
  10. TRIATEC [Concomitant]
     Active Substance: RAMIPRIL
     Dosage: START DATE: LONG TIME
     Route: 048
  11. DIFFU K [Concomitant]
     Active Substance: POTASSIUM CHLORIDE
     Dosage: START DATE: LONG TIME
     Route: 048
     Dates: end: 20151021
  12. LYSANXIA [Suspect]
     Active Substance: PRAZEPAM
     Dosage: START DATE: LONG TIME
     Route: 048
     Dates: end: 20151021

REACTIONS (1)
  - Acute respiratory failure [Recovered/Resolved]

NARRATIVE: CASE EVENT DATE: 20151021
